FAERS Safety Report 21077340 (Version 6)
Quarter: 2023Q4

REPORT INFORMATION
  Report Type: Report from Study
  Country: US (occurrence: US)
  Receive Date: 20220713
  Receipt Date: 20231012
  Transmission Date: 20240109
  Serious: Yes (Hospitalization, Disabling, Other)
  Sender: FDA-Public Use
  Company Number: US-TAKEDA-2021TUS040593

PATIENT
  Age: 45 Year
  Sex: Female

DRUGS (2)
  1. LANADELUMAB [Suspect]
     Active Substance: LANADELUMAB
     Indication: Prophylaxis
     Dosage: 300 MILLILITER, Q2WEEKS
     Route: 058
  2. LANADELUMAB [Suspect]
     Active Substance: LANADELUMAB
     Dosage: 300 MILLIGRAM, Q2WEEKS
     Route: 058

REACTIONS (8)
  - Rheumatoid arthritis [Unknown]
  - Facial pain [Not Recovered/Not Resolved]
  - Tendonitis [Unknown]
  - Upper respiratory tract infection [Not Recovered/Not Resolved]
  - Hereditary angioedema [Recovered/Resolved]
  - COVID-19 [Unknown]
  - Fibromyalgia [Unknown]
  - Vitamin D decreased [Unknown]

NARRATIVE: CASE EVENT DATE: 20210623
